FAERS Safety Report 8803494 (Version 1)
Quarter: 2012Q4

REPORT INFORMATION
  Report Type: 
  Country: US (occurrence: US)
  Receive Date: 20120924
  Receipt Date: 20120924
  Transmission Date: 20130627
  Serious: Yes (Hospitalization)
  Sender: FDA-Public Use
  Company Number: PHEH2012US018303

PATIENT
  Sex: Female

DRUGS (4)
  1. EXTAVIA [Suspect]
     Indication: MULTIPLE SCLEROSIS
     Dosage: 0.25 mg, QOD
     Route: 058
     Dates: start: 20120627
  2. PAXIL [Suspect]
  3. LITHIUM [Concomitant]
     Indication: BIPOLAR DISORDER
  4. RISPERDAL [Concomitant]
     Indication: BIPOLAR DISORDER

REACTIONS (2)
  - Mental disorder [Recovering/Resolving]
  - Depression [Recovering/Resolving]
